FAERS Safety Report 13458098 (Version 2)
Quarter: 2017Q3

REPORT INFORMATION
  Report Type: Report from Study
  Country: FR (occurrence: FR)
  Receive Date: 20170419
  Receipt Date: 20170721
  Transmission Date: 20171127
  Serious: Yes (Other)
  Sender: FDA-Public Use
  Company Number: FR-AMGEN-FRANI2017057518

PATIENT
  Age: 60 Year
  Sex: Male

DRUGS (3)
  1. DARATUMUMAB [Concomitant]
     Active Substance: DARATUMUMAB
     Indication: PLASMA CELL LEUKAEMIA
     Dosage: 16 MG/KG, Q2WK
  2. CARFILZOMIB [Suspect]
     Active Substance: CARFILZOMIB
     Indication: PLASMA CELL LEUKAEMIA
     Dosage: 56 MG/M2, UNK (ON DAY 1, 2, 8, 9, 15, AND 16)
     Route: 065
  3. NEODEX [Concomitant]
     Active Substance: DEXAMETHASONE\NEOMYCIN
     Indication: PLASMA CELL LEUKAEMIA
     Dosage: 40 MG, QWK

REACTIONS (2)
  - Plasma cell leukaemia [Unknown]
  - Cytopenia [Unknown]
